FAERS Safety Report 4283660-8 (Version None)
Quarter: 2004Q1

REPORT INFORMATION
  Report Type: 
  Country: None (occurrence: None)
  Receive Date: 20040202
  Receipt Date: 20040112
  Transmission Date: 20041129
  Serious: Yes (Hospitalization)
  Sender: FDA-Public Use
  Company Number: GB-ROCHE-355857

PATIENT
  Age: 49 Year
  Sex: Female
  Weight: 63.7 kg

DRUGS (11)
  1. ZENAPAX [Suspect]
     Route: 042
     Dates: start: 20020904, end: 20020904
  2. ZENAPAX [Suspect]
     Route: 042
     Dates: start: 20020918, end: 20031030
  3. CELLCEPT [Suspect]
     Route: 048
     Dates: start: 20020904, end: 20021216
  4. CELLCEPT [Suspect]
     Route: 048
     Dates: start: 20021230
  5. COTRIM [Suspect]
     Indication: DRUG USE FOR UNKNOWN INDICATION
     Route: 065
     Dates: start: 20020905, end: 20021219
  6. PREDNISOLONE [Concomitant]
     Dates: start: 20020905
  7. RANITIDINE [Concomitant]
     Dates: start: 20020905
  8. ASPIRIN [Concomitant]
     Dates: start: 20020905
  9. NIFEDIPINE [Concomitant]
     Dates: start: 20020905
  10. CYCLOSPORINE [Concomitant]
     Dates: start: 20020905
  11. IRON SULPHATE [Concomitant]
     Dates: start: 20021028

REACTIONS (3)
  - LEUKOPENIA [None]
  - POLLAKIURIA [None]
  - PYREXIA [None]
